FAERS Safety Report 5529048-0 (Version None)
Quarter: 2007Q4

REPORT INFORMATION
  Report Type: 
  Country: None (occurrence: None)
  Receive Date: 20071129
  Receipt Date: 20061016
  Transmission Date: 20080405
  Serious: No
  Sender: FDA-Public Use
  Company Number: A0622292A

PATIENT
  Age: 46 Year
  Sex: Female
  Weight: 99.1 kg

DRUGS (2)
  1. WELLBUTRIN SR [Suspect]
     Indication: ANXIETY
     Dosage: 200MG TWICE PER DAY
     Route: 048
     Dates: start: 19990101, end: 20060201
  2. BIRTH CONTROL PILLS [Concomitant]
     Route: 048

REACTIONS (1)
  - HYPOACUSIS [None]
